FAERS Safety Report 5374465-5 (Version None)
Quarter: 2007Q2

REPORT INFORMATION
  Report Type: 
  Country: None (occurrence: None)
  Receive Date: 20070629
  Receipt Date: 20070616
  Transmission Date: 20071010
  Serious: Yes (Life-Threatening)
  Sender: FDA-Public Use
  Company Number: IT-BAYER-200713486GDS

PATIENT
  Age: 76 Year
  Sex: Male

DRUGS (4)
  1. CIPROXIN [Suspect]
     Indication: PELVIC PAIN
     Dosage: TOTAL DAILY DOSE: 250 MG  UNIT DOSE: 250 MG
     Route: 048
     Dates: start: 20070613, end: 20070613
  2. CISTALGAN [Suspect]
     Indication: PELVIC PAIN
     Route: 048
     Dates: start: 20070613, end: 20070613
  3. XATRAL [Concomitant]
     Indication: DRUG USE FOR UNKNOWN INDICATION
     Route: 048
  4. LANSOPRAZOLE [Concomitant]
     Indication: DRUG USE FOR UNKNOWN INDICATION
     Route: 048

REACTIONS (4)
  - ANAPHYLACTIC REACTION [None]
  - ANAPHYLACTIC SHOCK [None]
  - CIRCULATORY COLLAPSE [None]
  - ERYTHEMA [None]
